FAERS Safety Report 18586174 (Version 1)
Quarter: 2020Q4

REPORT INFORMATION
  Report Type: Spontaneous
  Country: US (occurrence: US)
  Receive Date: 20201207
  Receipt Date: 20201207
  Transmission Date: 20210114
  Serious: No
  Sender: FDA-Public Use
  Company Number: US-PFIZER INC-2018344790

PATIENT
  Age: 71 Year
  Sex: Female
  Weight: 68 kg

DRUGS (2)
  1. LYRICA [Suspect]
     Active Substance: PREGABALIN
     Dosage: 150 MG, AS NEEDED (TAKE 1 CAP EVERY NIGHT AND 1 CAP ON A.M AS NEEDED AND AS INSTRUCTED)
  2. LYRICA [Suspect]
     Active Substance: PREGABALIN
     Indication: DIABETIC NEUROPATHY
     Dosage: 150 MG, 2X/DAY, (TAKE 1 CAPSULE (150 MG TOTAL) BY MOUTH 2 (TWO) TIMES A DAY)
     Route: 048

REACTIONS (1)
  - Malaise [Unknown]
